FAERS Safety Report 20994156 (Version 5)
Quarter: 2022Q3

REPORT INFORMATION
  Report Type: Spontaneous
  Country: FR (occurrence: FR)
  Receive Date: 20220622
  Receipt Date: 20220818
  Transmission Date: 20221027
  Serious: Yes (Hospitalization, Other)
  Sender: FDA-Public Use
  Company Number: FR-009507513-2206FRA000664

PATIENT
  Age: 64 Year
  Sex: Female
  Weight: 62 kg

DRUGS (16)
  1. TEMOZOLOMIDE [Suspect]
     Active Substance: TEMOZOLOMIDE
     Indication: Insulinoma
     Dosage: UNK (6 CYCLES) (START DATE: -JUN-2020)
     Route: 048
     Dates: end: 20201213
  2. TEMOZOLOMIDE [Suspect]
     Active Substance: TEMOZOLOMIDE
     Indication: Hypoglycaemia
     Dosage: UNK (START DATE: 2020 )
     Route: 065
     Dates: end: 202202
  3. CAPECITABINE [Suspect]
     Active Substance: CAPECITABINE
     Indication: Insulinoma
     Dosage: UNK (6 CYCLES) (START DATE: JUN-2020)
     Route: 065
     Dates: end: 20201213
  4. CAPECITABINE [Suspect]
     Active Substance: CAPECITABINE
     Indication: Hypoglycaemia
     Dosage: UNK (START DATE: 2020 )
     Route: 065
     Dates: end: 202202
  5. PASIREOTIDE [Suspect]
     Active Substance: PASIREOTIDE
     Indication: Insulinoma
     Dosage: 0.9 MILLIGRAM, BID SHORT ACTING (START DATE 2020)
     Route: 030
     Dates: end: 202012
  6. PASIREOTIDE [Suspect]
     Active Substance: PASIREOTIDE
     Dosage: 60 MILLIGRAM LONG ACTING (START DATE: DEC-2020)
     Route: 030
  7. EVEROLIMUS [Suspect]
     Active Substance: EVEROLIMUS
     Indication: Insulinoma
     Dosage: UNK (START DATE: AUG-2017)
     Route: 065
  8. EVEROLIMUS [Suspect]
     Active Substance: EVEROLIMUS
     Indication: Neuroendocrine tumour
  9. OCTREOTIDE [Suspect]
     Active Substance: OCTREOTIDE
     Indication: Insulinoma
     Dosage: 30 MILLIGRAM
     Route: 065
  10. SUNITINIB [Concomitant]
     Active Substance: SUNITINIB
     Indication: Insulinoma
     Dosage: UNK (START DATE: 2017 )
     Route: 065
     Dates: end: 202006
  11. PASIREOTIDE [Concomitant]
     Active Substance: PASIREOTIDE
     Indication: Insulinoma
     Dosage: 0.9 MILLIGRAM, BID (SHORT ACTING)/START DATE: 2020
     Route: 065
     Dates: end: 202012
  12. PASIREOTIDE [Concomitant]
     Active Substance: PASIREOTIDE
     Dosage: 60 MILLIGRAM (LONG ACTING)/ START DATE: DEC-2020
     Route: 065
  13. PASIREOTIDE [Concomitant]
     Active Substance: PASIREOTIDE
     Dosage: 20 MILLIGRAM (DOSE REDUCED)
     Route: 065
  14. PASIREOTIDE [Concomitant]
     Active Substance: PASIREOTIDE
     Dosage: 0.9 MILLIGRAM, BID/DEC-2019
     Route: 065
  15. PASIREOTIDE [Concomitant]
     Active Substance: PASIREOTIDE
     Dosage: 60 MILLIGRAM
     Route: 065
  16. OCTREOTIDE [Concomitant]
     Active Substance: OCTREOTIDE
     Indication: Insulinoma
     Dosage: 30 MILLIGRAM
     Route: 065

REACTIONS (4)
  - Thrombocytopenia [Recovering/Resolving]
  - Drug ineffective [Unknown]
  - Off label use [Unknown]
  - Product use in unapproved indication [Unknown]

NARRATIVE: CASE EVENT DATE: 20160101
